FAERS Safety Report 14103996 (Version 4)
Quarter: 2017Q4

REPORT INFORMATION
  Report Type: Spontaneous
  Country: BA (occurrence: BA)
  Receive Date: 20171018
  Receipt Date: 20171128
  Transmission Date: 20180321
  Serious: Yes (Life-Threatening)
  Sender: FDA-Public Use
  Company Number: BA-SA-2017SA201674

PATIENT
  Age: 45 Year
  Sex: Male
  Weight: 83 kg

DRUGS (9)
  1. MONOPRIL [Concomitant]
     Active Substance: FOSINOPRIL SODIUM
     Route: 065
  2. ALDOMET [Concomitant]
     Active Substance: METHYLDOPA
     Route: 065
  3. EPOETIN BETA [Concomitant]
     Active Substance: ERYTHROPOIETIN
     Dosage: 2/WEEKLY
     Route: 058
  4. DOXAZOSIN [Concomitant]
     Active Substance: DOXAZOSIN\DOXAZOSIN MESYLATE
     Route: 065
  5. NIFELAT L [Concomitant]
     Route: 065
  6. FERRLECIT [Suspect]
     Active Substance: SODIUM FERRIC GLUCONATE COMPLEX
     Indication: ANAEMIA
     Route: 042
     Dates: start: 20120921, end: 20170920
  7. FOLAN [Concomitant]
     Active Substance: FOLIC ACID
     Route: 065
  8. CONTROLOC [Concomitant]
     Active Substance: PANTOPRAZOLE SODIUM
     Route: 065
  9. LEXILIUM [Concomitant]
     Active Substance: BROMAZEPAM
     Route: 065

REACTIONS (4)
  - Incorrect dose administered [Unknown]
  - Hypoaesthesia oral [Recovered/Resolved]
  - Blood pressure increased [Unknown]
  - Dysgeusia [Recovered/Resolved]

NARRATIVE: CASE EVENT DATE: 20170920
